FAERS Safety Report 6754447-9 (Version None)
Quarter: 2010Q2

REPORT INFORMATION
  Report Type: 
  Country: None (occurrence: None)
  Receive Date: 20100603
  Receipt Date: 20100520
  Transmission Date: 20101027
  Serious: Yes (Other)
  Sender: FDA-Public Use
  Company Number: PHEH2010US03090

PATIENT
  Sex: Male

DRUGS (9)
  1. TEGRETOL [Suspect]
     Indication: BIPOLAR DISORDER
     Dosage: 200 MG, BID
     Route: 048
     Dates: start: 19840101
  2. TEGRETOL [Suspect]
     Dosage: 200 MG AT HOURS OF SLEEP AND AND 100 MG AM
     Route: 048
     Dates: start: 20100301
  3. DIOVAN [Suspect]
     Indication: HYPERTENSION
     Dosage: 20 MG HALF AT HOURS OF SLEEP
  4. LITHIUM CARBONATE [Suspect]
     Indication: BIPOLAR DISORDER
     Dosage: 300 MG HALF BID
     Dates: start: 19780101
  5. VERAPAMIL [Suspect]
     Dosage: 120 MG IN THE AM
     Route: 048
  6. SIMVASTATIN [Concomitant]
     Dosage: 40 MG HOURS OF SLEEP
     Route: 048
  7. OMEPRAZOLE [Concomitant]
     Dosage: 20 MG IN AM
  8. VITAMIN D3 [Concomitant]
     Dosage: 1000 (UNITS UNSPECIFIED) IN THE AM
     Route: 048
  9. ASPIRIN [Concomitant]
     Dosage: 81 MG, UNK
     Route: 048

REACTIONS (3)
  - BLOOD CREATININE INCREASED [None]
  - MANIA [None]
  - RENAL IMPAIRMENT [None]
